FAERS Safety Report 8487962-0 (Version None)
Quarter: 2012Q3

REPORT INFORMATION
  Report Type: 
  Country: None (occurrence: None)
  Receive Date: 20120705
  Receipt Date: 20120627
  Transmission Date: 20120928
  Serious: Yes (Other)
  Sender: FDA-Public Use
  Company Number: US-ASTRAZENECA-2011SE32253

PATIENT
  Age: 63 Year
  Sex: Female
  Weight: 65.8 kg

DRUGS (27)
  1. PREVACID [Concomitant]
     Indication: GASTROOESOPHAGEAL REFLUX DISEASE
     Dates: start: 20030701, end: 20060801
  2. ASPIRIN [Concomitant]
     Indication: ARTHRALGIA
     Dates: start: 20120510
  3. CRESTOR [Concomitant]
     Indication: BLOOD CHOLESTEROL
     Dates: start: 20111121
  4. VITAMIN D [Concomitant]
     Dates: start: 20111121
  5. ZEGERID [Concomitant]
     Indication: GASTROOESOPHAGEAL REFLUX DISEASE
     Dates: start: 20070801
  6. ZEGERID [Concomitant]
     Dates: start: 20111121
  7. AMILORIDE HCL AND HYDROCHLOROTHIAZIDE [Concomitant]
     Indication: CALCIUM METABOLISM DISORDER
     Dosage: 5MG/50MG
  8. SYNTHROID [Concomitant]
     Indication: HYPERPARATHYROIDISM
     Dosage: 175 MCG
     Dates: start: 20111121
  9. CLIMARA [Concomitant]
     Dates: start: 20060101
  10. CALCIUM [Concomitant]
     Indication: CALCIUM DEFICIENCY
     Dates: start: 20111121
  11. AMIODARONE HCL [Concomitant]
     Dates: start: 20111121
  12. PROTONIX [Concomitant]
     Indication: GASTROOESOPHAGEAL REFLUX DISEASE
     Dates: start: 20060801, end: 20070701
  13. LIPITOR [Concomitant]
     Indication: BLOOD CHOLESTEROL
  14. NEXIUM [Suspect]
     Route: 048
     Dates: start: 20011201, end: 20030701
  15. ASPIRIN [Concomitant]
     Indication: CARDIAC DISORDER
     Dates: start: 20120510
  16. CLIMARA [Concomitant]
     Dates: start: 20111121
  17. BEXTRA [Concomitant]
     Dates: start: 20030408
  18. SYNTHROID [Concomitant]
     Indication: THYROID DISORDER
     Dosage: 175 MCG
     Dates: start: 20111121
  19. VERSED [Concomitant]
     Route: 040
     Dates: start: 20070821
  20. OCTANOL [Concomitant]
     Dates: start: 20030408
  21. NEXIUM [Suspect]
     Route: 048
     Dates: start: 20030408
  22. ATROPINE [Concomitant]
     Dates: start: 20070821
  23. NEXIUM [Suspect]
     Indication: GASTROOESOPHAGEAL REFLUX DISEASE
     Route: 048
     Dates: start: 20010101, end: 20030101
  24. TOPROL-XL [Concomitant]
     Indication: BLOOD PRESSURE
     Dates: start: 20111121
  25. AMITIZA [Concomitant]
     Dates: start: 20111121
  26. VALTREX [Concomitant]
     Dates: start: 20111121
  27. DEMEROL [Concomitant]
     Dates: start: 20070821

REACTIONS (8)
  - OSTEOPOROSIS [None]
  - CARPAL TUNNEL SYNDROME [None]
  - LIGAMENT SPRAIN [None]
  - SPINAL COMPRESSION FRACTURE [None]
  - BONE DENSITY DECREASED [None]
  - EPICONDYLITIS [None]
  - CUBITAL TUNNEL SYNDROME [None]
  - SPINAL FRACTURE [None]
